FAERS Safety Report 9108353 (Version 1)
Quarter: 2013Q1

REPORT INFORMATION
  Report Type: Spontaneous
  Country: FR (occurrence: FR)
  Receive Date: 20130222
  Receipt Date: 20130222
  Transmission Date: 20140127
  Serious: Yes (Hospitalization)
  Sender: FDA-Public Use
  Company Number: FR-B.I. PHARMACEUTICALS,INC./RIDGEFIELD-2013-FF-00525FF

PATIENT
  Age: 79 Year
  Sex: Female

DRUGS (1)
  1. PRADAXA [Suspect]
     Route: 048

REACTIONS (2)
  - Splenic embolism [Recovered/Resolved]
  - Renal embolism [Recovered/Resolved]
